FAERS Safety Report 20500730 (Version 2)
Quarter: 2022Q2

REPORT INFORMATION
  Report Type: Spontaneous
  Country: DE (occurrence: DE)
  Receive Date: 20220222
  Receipt Date: 20220415
  Transmission Date: 20220721
  Serious: Yes (Hospitalization, Other)
  Sender: FDA-Public Use
  Company Number: DE-ASTELLAS-2022US004235

PATIENT
  Age: 74 Year
  Sex: Male

DRUGS (9)
  1. PROGRAF [Suspect]
     Active Substance: TACROLIMUS
     Indication: Transplant
     Route: 065
     Dates: end: 2018
  2. PROGRAF [Suspect]
     Active Substance: TACROLIMUS
     Indication: Prostate infection
     Dosage: 0.5 MG, TWICE DAILY (EVERY 12 HOURS)
     Route: 065
  3. PROGRAF [Suspect]
     Active Substance: TACROLIMUS
     Dosage: 1 MG, TWICE DAILY (EVERY 12 HOURS)
     Route: 065
  4. PROGRAF [Suspect]
     Active Substance: TACROLIMUS
     Dosage: 0.4 MG, ONCE DAILY
     Route: 065
  5. PROGRAF [Suspect]
     Active Substance: TACROLIMUS
     Dosage: 0.5 MG, TWICE DAILY, EVERY 12 HRS
     Route: 065
  6. TACROLIMUS [Suspect]
     Active Substance: TACROLIMUS
     Indication: Transplant
     Dosage: UNK UNK, UNKNOWN FREQ., PKGID=A55
     Route: 065
  7. TACROLIMUS [Suspect]
     Active Substance: TACROLIMUS
     Dosage: 1 MG, TWICE DAILY Q12H
     Route: 065
  8. TACROLIMUS [Suspect]
     Active Substance: TACROLIMUS
     Dosage: 0.5 MG, TWICE DAILY, Q12H
     Route: 065
  9. TAMSULOSIN [Suspect]
     Active Substance: TAMSULOSIN
     Indication: Prostate infection
     Dosage: 0.4 MG, ONCE DAILY
     Route: 065

REACTIONS (4)
  - Abdominal wall haemorrhage [Unknown]
  - Renal cyst [Unknown]
  - Restlessness [Unknown]
  - Overdose [Unknown]

NARRATIVE: CASE EVENT DATE: 20211230
